FAERS Safety Report 11162761 (Version 5)
Quarter: 2020Q4

REPORT INFORMATION
  Report Type: Spontaneous
  Country: US (occurrence: US)
  Receive Date: 20150604
  Receipt Date: 20201012
  Transmission Date: 20210113
  Serious: No
  Sender: FDA-Public Use
  Company Number: US-SA-2015SA014090

PATIENT

DRUGS (10)
  1. LANTUS SOLOSTAR [Suspect]
     Active Substance: INSULIN GLARGINE
     Dosage: 10 IU, QD
     Route: 065
  2. CULTURELLE [Interacting]
     Active Substance: LACTOBACILLUS RHAMNOSUS
     Dosage: UNK
     Route: 065
  3. LANTUS SOLOSTAR [Suspect]
     Active Substance: INSULIN GLARGINE
     Indication: TYPE 2 DIABETES MELLITUS
     Dosage: 25 IU, QD
     Route: 065
     Dates: start: 2012
  4. LANTUS SOLOSTAR [Suspect]
     Active Substance: INSULIN GLARGINE
     Dosage: 15 IU, HS
     Route: 065
  5. LANTUS SOLOSTAR [Suspect]
     Active Substance: INSULIN GLARGINE
     Dosage: 32 UNITS EVERY MORNING
     Route: 065
  6. LEVEMIR [Concomitant]
     Active Substance: INSULIN DETEMIR
     Dosage: UNK
     Route: 065
  7. LANTUS SOLOSTAR [Suspect]
     Active Substance: INSULIN GLARGINE
     Dosage: 16 IU, QD
     Route: 065
  8. NOVOLOG [Concomitant]
     Active Substance: INSULIN ASPART
     Dosage: 10 IU, TID
  9. NOVOLOG [Concomitant]
     Active Substance: INSULIN ASPART
     Dosage: 20 DF,TID
     Route: 065
     Dates: start: 2012
  10. VICTOZA [Concomitant]
     Active Substance: LIRAGLUTIDE
     Dosage: UNK
     Route: 065

REACTIONS (10)
  - Drug interaction [Unknown]
  - Fatigue [Not Recovered/Not Resolved]
  - Injection site pain [Not Recovered/Not Resolved]
  - Hypersensitivity [Unknown]
  - Asthenia [Not Recovered/Not Resolved]
  - Insomnia [Unknown]
  - Nightmare [Unknown]
  - Product use issue [Unknown]
  - Gastrointestinal disorder [Not Recovered/Not Resolved]
  - Pruritus [Unknown]
